FAERS Safety Report 9899389 (Version 4)
Quarter: 2014Q2

REPORT INFORMATION
  Report Type: Spontaneous
  Country: US (occurrence: US)
  Receive Date: 20140214
  Receipt Date: 20140505
  Transmission Date: 20141212
  Serious: Yes (Other)
  Sender: FDA-Public Use
  Company Number: US-PFIZER INC-2014041692

PATIENT
  Age: 67 Year
  Sex: Male
  Weight: 87.7 kg

DRUGS (8)
  1. SUTENT [Suspect]
     Indication: METASTATIC RENAL CELL CARCINOMA
     Dosage: 50 MG, CYCLIC 28 DAYS
     Dates: start: 20140207
  2. COZAAR [Concomitant]
     Indication: HYPERTENSION
     Dosage: UNK
  3. TRAZODONE [Concomitant]
     Dosage: UNK
  4. WELLBUTRIN [Concomitant]
     Dosage: UNK
  5. REMERON [Concomitant]
     Dosage: UNK
  6. BENICAR [Concomitant]
     Indication: BLOOD PRESSURE
     Dosage: UNK
  7. LIPITOR [Concomitant]
     Dosage: UNK
  8. PROBIOTICS [Concomitant]
     Dosage: UNK

REACTIONS (12)
  - Hypertension [Recovered/Resolved]
  - Wound infection [Recovering/Resolving]
  - Rash pruritic [Recovered/Resolved]
  - Lymphadenopathy [Unknown]
  - Impaired healing [Unknown]
  - Platelet count decreased [Unknown]
  - Decreased appetite [Unknown]
  - Weight decreased [Unknown]
  - Pain in extremity [Unknown]
  - Asthenia [Unknown]
  - Disease progression [Unknown]
  - Metastatic renal cell carcinoma [Unknown]
